FAERS Safety Report 6230895-0 (Version None)
Quarter: 2009Q2

REPORT INFORMATION
  Report Type: 
  Country: None (occurrence: None)
  Receive Date: 20090616
  Receipt Date: 20090605
  Transmission Date: 20091009
  Serious: Yes (Other)
  Sender: FDA-Public Use
  Company Number: PHHY2008CA18270

PATIENT
  Sex: Male

DRUGS (7)
  1. CO-DIOVAN T32564+ [Suspect]
     Indication: HYPERTENSION
     Dosage: 80/12.5 MG/DAY
     Route: 048
     Dates: start: 20080609, end: 20080624
  2. VASOTEC [Concomitant]
     Dosage: 2.5 MG DAILY
  3. HYDRODIURIL [Concomitant]
     Dosage: 12.5 MG
  4. DUVOID [Concomitant]
     Indication: BLADDER DISORDER
  5. ELMIRON [Concomitant]
     Indication: CYSTITIS NONINFECTIVE
     Dosage: 1 DF, TID
  6. LIPITOR [Concomitant]
     Dosage: 20 MG DIE
  7. PANTOPRAZOLE SODIUM [Concomitant]
     Dosage: 40 MG, 1 CO DIE

REACTIONS (3)
  - BLOOD CREATININE INCREASED [None]
  - COUGH [None]
  - URINARY RETENTION [None]
